FAERS Safety Report 9903251 (Version 1)
Quarter: 2014Q1

REPORT INFORMATION
  Report Type: Spontaneous
  Country: US (occurrence: US)
  Receive Date: 20140217
  Receipt Date: 20140217
  Transmission Date: 20141002
  Serious: No
  Sender: FDA-Public Use
  Company Number: US-GILEAD-2011-0046594

PATIENT
  Age: 46 Year
  Sex: Female
  Weight: 65.4 kg

DRUGS (3)
  1. LETAIRIS [Suspect]
     Indication: PULMONARY ARTERIAL HYPERTENSION
     Dosage: UNK
     Route: 048
  2. REMODULIN [Suspect]
     Indication: PULMONARY ARTERIAL HYPERTENSION
  3. REVATIO [Suspect]

REACTIONS (1)
  - Painful respiration [Unknown]
